FAERS Safety Report 9134992 (Version 6)
Quarter: 2015Q1

REPORT INFORMATION
  Report Type: Spontaneous
  Country: US (occurrence: US)
  Receive Date: 20130304
  Receipt Date: 20150112
  Transmission Date: 20150721
  Serious: Yes (Death, Hospitalization, Other)
  Sender: FDA-Public Use
  Company Number: US-SANOFI-AVENTIS-2013SA019983

PATIENT
  Age: 51 Year
  Sex: Male
  Weight: 90.7 kg

DRUGS (16)
  1. ALPRAZOLAM. [Concomitant]
     Active Substance: ALPRAZOLAM
  2. OMEPRAZOLE. [Concomitant]
     Active Substance: OMEPRAZOLE
  3. PROMETHAZINE [Concomitant]
     Active Substance: PROMETHAZINE\PROMETHAZINE HYDROCHLORIDE
  4. MORPHINE [Concomitant]
     Active Substance: MORPHINE
  5. WARFARIN SODIUM. [Concomitant]
     Active Substance: WARFARIN SODIUM
     Route: 048
  6. SELENIUM SULFIDE. [Concomitant]
     Active Substance: SELENIUM SULFIDE
  7. COUMADIN [Concomitant]
     Active Substance: WARFARIN SODIUM
  8. ECONAZOLE [Concomitant]
     Active Substance: ECONAZOLE
  9. PROTONIX [Concomitant]
     Active Substance: PANTOPRAZOLE SODIUM
     Route: 048
  10. METHYLPREDNISOLONE. [Concomitant]
     Active Substance: METHYLPREDNISOLONE
  11. AMOXICILLIN/CLAVULANIC ACID [Concomitant]
  12. ENOXAPARIN [Concomitant]
     Active Substance: ENOXAPARIN
     Dosage: DOSE: 80/0.8 ML BY INJ.
  13. NEXIUM [Concomitant]
     Active Substance: ESOMEPRAZOLE MAGNESIUM
  14. MULTAQ [Suspect]
     Active Substance: DRONEDARONE
     Indication: ATRIAL FIBRILLATION
     Route: 048
  15. ZOLPIDEM [Concomitant]
     Active Substance: ZOLPIDEM\ZOLPIDEM TARTRATE
  16. CYMBALTA [Concomitant]
     Active Substance: DULOXETINE HYDROCHLORIDE

REACTIONS (39)
  - Disorientation [Unknown]
  - Liver function test abnormal [Unknown]
  - Agitation [Unknown]
  - Incontinence [Unknown]
  - Coronary artery disease [Unknown]
  - Hypoxic-ischaemic encephalopathy [Unknown]
  - Acute kidney injury [Fatal]
  - Respiratory failure [Unknown]
  - Metabolic acidosis [Unknown]
  - Loss of consciousness [Unknown]
  - Coma [Unknown]
  - Mobility decreased [Unknown]
  - Insomnia [Unknown]
  - Pyrexia [Unknown]
  - Nausea [Unknown]
  - Gastrointestinal haemorrhage [Unknown]
  - Hepatic failure [Fatal]
  - Secretion discharge [Unknown]
  - Constipation [Unknown]
  - Cardio-respiratory arrest [Unknown]
  - Coagulopathy [Recovered/Resolved]
  - Cardiac failure chronic [Fatal]
  - Dry mouth [Unknown]
  - Vomiting [Unknown]
  - Hypotension [Unknown]
  - Liver injury [Unknown]
  - Dyspnoea [Recovered/Resolved]
  - Brain death [Unknown]
  - Ventricular fibrillation [Fatal]
  - Renal tubular necrosis [Unknown]
  - Myocardial infarction [Unknown]
  - Pain [Unknown]
  - Candida infection [Unknown]
  - Diarrhoea [Unknown]
  - Hypertension [Unknown]
  - Peripheral vascular disorder [Unknown]
  - Ventricular tachycardia [Unknown]
  - Dysphagia [Unknown]
  - Pruritus [Unknown]

NARRATIVE: CASE EVENT DATE: 20110227
